FAERS Safety Report 9729084 (Version 1)
Quarter: 2013Q4

REPORT INFORMATION
  Report Type: Spontaneous
  Country: US (occurrence: US)
  Receive Date: 20131204
  Receipt Date: 20131204
  Transmission Date: 20140711
  Serious: Yes (Other)
  Sender: FDA-Public Use
  Company Number: PHHY2013US137515

PATIENT
  Age: 47 Year
  Sex: Female

DRUGS (4)
  1. AMITRIPTYLINE [Suspect]
  2. MELOXICAM [Concomitant]
  3. HYDROCODONE W/PARACETAMOL [Concomitant]
  4. DIPHENHYDRAMINE [Concomitant]

REACTIONS (3)
  - Retinopathy [Unknown]
  - Visual field defect [Unknown]
  - Photopsia [Unknown]
